FAERS Safety Report 7428528-0 (Version None)
Quarter: 2011Q2

REPORT INFORMATION
  Report Type: 
  Country: None (occurrence: None)
  Receive Date: 20110421
  Receipt Date: 20110411
  Transmission Date: 20111010
  Serious: Yes (Other)
  Sender: FDA-Public Use
  Company Number: GB-B.I. PHARMACEUTICALS,INC./RIDGEFIELD-2011-UK-00396UK

PATIENT
  Sex: Female

DRUGS (1)
  1. SPIRIVA [Suspect]

REACTIONS (5)
  - HEART RATE INCREASED [None]
  - OCULAR HYPERTENSION [None]
  - PALPITATIONS [None]
  - HEART RATE IRREGULAR [None]
  - DYSPNOEA [None]
